FAERS Safety Report 18021763 (Version 4)
Quarter: 2020Q3

REPORT INFORMATION
  Report Type: Report from Study
  Country: TW (occurrence: TW)
  Receive Date: 20200714
  Receipt Date: 20200818
  Transmission Date: 20201103
  Serious: Yes (Hospitalization, Other)
  Sender: FDA-Public Use
  Company Number: TW-JNJFOC-20200704030

PATIENT
  Age: 49 Year
  Sex: Female
  Weight: 30.28 kg

DRUGS (2)
  1. ERDAFITINIB. [Suspect]
     Active Substance: ERDAFITINIB
     Indication: NEOPLASM
     Route: 048
     Dates: start: 20200402, end: 20200701
  2. ERDAFITINIB. [Suspect]
     Active Substance: ERDAFITINIB
     Dosage: MED KIT NUMBER 750?6094
     Route: 048
     Dates: start: 20200319

REACTIONS (3)
  - Corneal defect [Recovered/Resolved]
  - Dry eye [Recovered/Resolved]
  - Corneal oedema [Recovered/Resolved]

NARRATIVE: CASE EVENT DATE: 20200702
